FAERS Safety Report 8971408 (Version 1)
Quarter: 2012Q4

REPORT INFORMATION
  Report Type: 
  Country: JP (occurrence: JP)
  Receive Date: 20121218
  Receipt Date: 20121218
  Transmission Date: 20130627
  Serious: Yes (Hospitalization)
  Sender: FDA-Public Use
  Company Number: JP-ROCHE-1138936

PATIENT
  Age: 5 Year
  Sex: Male
  Weight: 20.6 kg

DRUGS (7)
  1. ACTEMRA [Suspect]
     Indication: JUVENILE ARTHRITIS
     Dosage: Dosage is uncertain.
     Route: 041
     Dates: start: 20120803, end: 20120817
  2. ACTEMRA [Suspect]
     Indication: JUVENILE ARTHRITIS
     Dosage: Dosage is uncertain.
     Route: 041
     Dates: start: 20120824
  3. NEORAL [Concomitant]
     Indication: IMMUNOSUPPRESSION
     Route: 048
     Dates: start: 20120508
  4. PREDNISOLONE [Concomitant]
     Indication: IMMUNOSUPPRESSION
     Route: 048
     Dates: start: 20120409
  5. SELBEX [Concomitant]
     Indication: PROPHYLAXIS
     Route: 048
     Dates: start: 20120406
  6. RHEUMATREX [Concomitant]
     Indication: IMMUNOSUPPRESSION
     Route: 048
     Dates: start: 20120410
  7. FOLIAMIN [Concomitant]
     Indication: PROPHYLAXIS
     Route: 048
     Dates: start: 20120411

REACTIONS (3)
  - Pyrexia [Recovering/Resolving]
  - White blood cell count increased [Not Recovered/Not Resolved]
  - Interleukin level increased [Recovered/Resolved]
